FAERS Safety Report 11786477 (Version 1)
Quarter: 2015Q4

REPORT INFORMATION
  Report Type: Spontaneous
  Country: BR (occurrence: BR)
  Receive Date: 20151130
  Receipt Date: 20151130
  Transmission Date: 20160305
  Serious: Yes (Hospitalization)
  Sender: FDA-Public Use
  Company Number: BR-PFIZER INC-2015406372

PATIENT
  Sex: Male

DRUGS (1)
  1. LONITEN [Suspect]
     Active Substance: MINOXIDIL

REACTIONS (1)
  - Cerebrovascular accident [Unknown]
